FAERS Safety Report 19680155 (Version 4)
Quarter: 2021Q3

REPORT INFORMATION
  Report Type: Spontaneous
  Country: US (occurrence: US)
  Receive Date: 20210810
  Receipt Date: 20210917
  Transmission Date: 20211014
  Serious: Yes (Other)
  Sender: FDA-Public Use
  Company Number: US-PFIZER INC-2020198273

PATIENT
  Age: 59 Year
  Sex: Female
  Weight: 53.52 kg

DRUGS (2)
  1. ESTRING [Suspect]
     Active Substance: ESTRADIOL
     Indication: VULVOVAGINAL DRYNESS
     Dosage: UNK, INSERTED FOR 3NOS
     Route: 067
     Dates: start: 20200404
  2. ESTRING [Suspect]
     Active Substance: ESTRADIOL
     Dosage: UNK, EVERY 3 MONTHS
     Route: 067
     Dates: start: 20200417, end: 20200501

REACTIONS (2)
  - Device leakage [Unknown]
  - Vaginal discharge [Unknown]
